FAERS Safety Report 10334987 (Version 1)
Quarter: 2014Q3

REPORT INFORMATION
  Report Type: Spontaneous
  Country: RO (occurrence: RO)
  Receive Date: 20140723
  Receipt Date: 20140723
  Transmission Date: 20150326
  Serious: Yes (Other)
  Sender: FDA-Public Use
  Company Number: PHHY2014RO090094

PATIENT
  Age: 59 Year
  Sex: Female

DRUGS (4)
  1. ETANERCEPT [Suspect]
     Active Substance: ETANERCEPT
     Indication: RHEUMATOID ARTHRITIS
  2. METHOTREXATE [Suspect]
     Active Substance: METHOTREXATE
     Indication: RHEUMATOID ARTHRITIS
  3. ETANERCEPT [Suspect]
     Active Substance: ETANERCEPT
     Indication: IMMUNOSUPPRESSION
  4. METHOTREXATE [Suspect]
     Active Substance: METHOTREXATE
     Indication: IMMUNOSUPPRESSION

REACTIONS (9)
  - Hypertrophic cardiomyopathy [Unknown]
  - Left ventricle outflow tract obstruction [Unknown]
  - Erythema [Recovered/Resolved]
  - Lichen planus [Unknown]
  - Pruritus [Unknown]
  - Staphylococcal infection [Unknown]
  - Cardiac murmur [Unknown]
  - Skin discolouration [Unknown]
  - Skin plaque [Unknown]
